FAERS Safety Report 15899872 (Version 1)
Quarter: 2019Q1

REPORT INFORMATION
  Report Type: Spontaneous
  Country: CH (occurrence: CH)
  Receive Date: 20190201
  Receipt Date: 20190201
  Transmission Date: 20190417
  Serious: Yes (Other)
  Sender: FDA-Public Use
  Company Number: CH-ASTRAZENECA-2019SE14966

PATIENT
  Age: 20534 Day
  Sex: Male

DRUGS (10)
  1. IRFEN [Suspect]
     Active Substance: IBUPROFEN
     Dosage: 400.0MG UNKNOWN
     Route: 048
     Dates: start: 20180508, end: 20180509
  2. TRITTICO [Suspect]
     Active Substance: TRAZODONE HYDROCHLORIDE
     Route: 065
     Dates: start: 201802
  3. NEXIUM [Suspect]
     Active Substance: ESOMEPRAZOLE MAGNESIUM
     Dosage: 40.0MG UNKNOWN
     Route: 048
     Dates: start: 20180426
  4. IRFEN [Suspect]
     Active Substance: IBUPROFEN
     Dosage: 600.0MG UNKNOWN
     Route: 048
     Dates: start: 20180502, end: 20180508
  5. SEVREDOL [Concomitant]
     Active Substance: MORPHINE
     Dosage: AS NECESSARY UNKNOWN
     Dates: start: 20180507
  6. DAFALGAN [Suspect]
     Active Substance: ACETAMINOPHEN
     Dosage: 1.0G UNKNOWN
     Route: 048
     Dates: start: 20180424, end: 20180504
  7. IRFEN [Suspect]
     Active Substance: IBUPROFEN
     Dosage: AS NECESSARY UNKNOWN
     Route: 048
     Dates: start: 20180509
  8. CLEXANE [Suspect]
     Active Substance: ENOXAPARIN SODIUM
     Dosage: 40.0MG UNKNOWN
     Route: 058
     Dates: start: 20180504, end: 20180509
  9. SEVREDOL [Concomitant]
     Active Substance: MORPHINE
     Dosage: 10.0MG UNKNOWN
     Dates: start: 20180502, end: 20180507
  10. MOVICOL [Concomitant]
     Active Substance: POLYETHYLENE GLYCOL 3350\POTASSIUM CHLORIDE\SODIUM BICARBONATE\SODIUM CHLORIDE
     Dates: start: 20180504, end: 20180507

REACTIONS (1)
  - Cholestatic liver injury [Recovering/Resolving]

NARRATIVE: CASE EVENT DATE: 20180509
